FAERS Safety Report 7396255-4 (Version None)
Quarter: 2011Q2

REPORT INFORMATION
  Report Type: 
  Country: None (occurrence: None)
  Receive Date: 20110406
  Receipt Date: 20110328
  Transmission Date: 20111010
  Serious: Yes (Other)
  Sender: FDA-Public Use
  Company Number: US-JNJFOC-20110312731

PATIENT
  Age: 37 Year
  Sex: Female
  Weight: 95.26 kg

DRUGS (2)
  1. BENADRYL [Suspect]
     Route: 048
  2. BENADRYL [Suspect]
     Indication: MULTIPLE ALLERGIES
     Dosage: 1/2 ADULT DOSAGE
     Route: 048

REACTIONS (2)
  - DRUG HYPERSENSITIVITY [None]
  - LOSS OF CONSCIOUSNESS [None]
